FAERS Safety Report 11335211 (Version 1)
Quarter: 2015Q3

REPORT INFORMATION
  Report Type: Spontaneous
  Country: US (occurrence: None)
  Receive Date: 20150731
  Receipt Date: 20150731
  Transmission Date: 20151125
  Serious: No
  Sender: FDA-Public Use
  Company Number: None

PATIENT
  Age: 59 Year
  Sex: Male
  Weight: 72.58 kg

DRUGS (5)
  1. CELECOXIB. [Suspect]
     Active Substance: CELECOXIB
     Indication: BACK PAIN
     Dosage: 1 PILL
     Route: 048
     Dates: start: 20150331, end: 20150730
  2. ASPIRIN. [Concomitant]
     Active Substance: ASPIRIN
  3. CRESTOR [Concomitant]
     Active Substance: ROSUVASTATIN CALCIUM
  4. NIACIN. [Concomitant]
     Active Substance: NIACIN
  5. CELECOXIB. [Suspect]
     Active Substance: CELECOXIB
     Indication: ARTHRITIS
     Dosage: 1 PILL
     Route: 048
     Dates: start: 20150331, end: 20150730

REACTIONS (3)
  - Drug effect decreased [None]
  - Product substitution issue [None]
  - Peripheral swelling [None]

NARRATIVE: CASE EVENT DATE: 20150331
